FAERS Safety Report 5202681-1 (Version None)
Quarter: 2006Q4

REPORT INFORMATION
  Report Type: 
  Country: None (occurrence: None)
  Receive Date: 20061018
  Receipt Date: 20041214
  Transmission Date: 20070319
  Serious: Yes (Other)
  Sender: FDA-Public Use
  Company Number: PHEH2004US13308

PATIENT
  Sex: 0

DRUGS (1)
  1. ZOMETA [Suspect]

REACTIONS (1)
  - BONE EROSION [None]
